FAERS Safety Report 22531661 (Version 1)
Quarter: 2023Q2

REPORT INFORMATION
  Report Type: Spontaneous
  Country: US (occurrence: US)
  Receive Date: 20230607
  Receipt Date: 20230607
  Transmission Date: 20230722
  Serious: No
  Sender: FDA-Public Use
  Company Number: US-ABBVIE-5279110

PATIENT
  Age: 48 Year
  Sex: Female

DRUGS (1)
  1. LINZESS [Suspect]
     Active Substance: LINACLOTIDE
     Indication: Product used for unknown indication
     Dosage: STOP DATE TEXT: A WEEK OR SO
     Route: 048
     Dates: end: 202305

REACTIONS (5)
  - Malaise [Unknown]
  - Abdominal distension [Not Recovered/Not Resolved]
  - Hypophagia [Unknown]
  - Abdominal pain upper [Not Recovered/Not Resolved]
  - Vomiting [Unknown]

NARRATIVE: CASE EVENT DATE: 20230604
